FAERS Safety Report 5931864-8 (Version None)
Quarter: 2008Q4

REPORT INFORMATION
  Report Type: 
  Country: None (occurrence: None)
  Receive Date: 20081027
  Receipt Date: 20080926
  Transmission Date: 20090506
  Serious: Yes (Other)
  Sender: FDA-Public Use
  Company Number: PHHY2008CN21506

PATIENT
  Age: 20 Year
  Sex: Male

DRUGS (2)
  1. SEBIVO [Suspect]
     Indication: HEPATITIS B
     Dosage: 600 MG/DAY
     Route: 048
     Dates: start: 20080201, end: 20080908
  2. INTERFERON ALFA-2B [Concomitant]
     Dosage: UNK
     Route: 030
     Dates: end: 20080901

REACTIONS (13)
  - BLOOD CREATINE PHOSPHOKINASE INCREASED [None]
  - BLOOD LACTATE DEHYDROGENASE INCREASED [None]
  - CARDIAC ENZYMES INCREASED [None]
  - CARDIOMEGALY [None]
  - DECREASED APPETITE [None]
  - JOINT SWELLING [None]
  - MYALGIA [None]
  - NAUSEA [None]
  - OEDEMA [None]
  - OEDEMA PERIPHERAL [None]
  - PALPITATIONS [None]
  - PROTEIN URINE PRESENT [None]
  - URINE BILIRUBIN INCREASED [None]
